FAERS Safety Report 12876116 (Version 1)
Quarter: 2016Q4

REPORT INFORMATION
  Report Type: Spontaneous
  Country: US (occurrence: US)
  Receive Date: 20161024
  Receipt Date: 20161024
  Transmission Date: 20170207
  Serious: No
  Sender: FDA-Public Use
  Company Number: US-JAZZ-2016-US-015307

PATIENT
  Sex: Female

DRUGS (32)
  1. XYREM [Suspect]
     Active Substance: SODIUM OXYBATE
     Dosage: DOSE ADJUSTMENTS
     Route: 048
     Dates: start: 2010, end: 201304
  2. NALTREXONE HCL [Concomitant]
     Active Substance: NALTREXONE HYDROCHLORIDE
  3. SINGULAIR [Concomitant]
     Active Substance: MONTELUKAST SODIUM
  4. PANTOPRAZOLE SODIUM. [Concomitant]
     Active Substance: PANTOPRAZOLE SODIUM
  5. PROPRANOLOL [Concomitant]
     Active Substance: PROPRANOLOL\PROPRANOLOL HYDROCHLORIDE
  6. ZINC [Concomitant]
     Active Substance: ZINC\ZINC CHLORIDE
  7. VYVANSE [Concomitant]
     Active Substance: LISDEXAMFETAMINE DIMESYLATE
  8. CIPROFLOXACIN. [Concomitant]
     Active Substance: CIPROFLOXACIN
  9. METRONIDAZOLE. [Concomitant]
     Active Substance: METRONIDAZOLE
  10. FLEXERIL [Concomitant]
     Active Substance: CYCLOBENZAPRINE HYDROCHLORIDE
  11. AZITHROMYCIN ANHYDROUS. [Concomitant]
     Active Substance: AZITHROMYCIN ANHYDROUS
  12. FLUTICASONE PROPRIONATE [Concomitant]
     Active Substance: FLUTICASONE PROPIONATE
  13. AMPHETAMINE [Concomitant]
     Active Substance: AMPHETAMINE
  14. DHEA [Concomitant]
     Active Substance: PRASTERONE
  15. DIMACOL [Concomitant]
  16. TRAMADOL HCL [Concomitant]
     Active Substance: TRAMADOL HYDROCHLORIDE
  17. AMOXICILLIN. [Concomitant]
     Active Substance: AMOXICILLIN
  18. VALTREX [Concomitant]
     Active Substance: VALACYCLOVIR HYDROCHLORIDE
  19. L-CARNITINE [Concomitant]
     Active Substance: LEVOCARNITINE
  20. FOCALIN [Concomitant]
     Active Substance: DEXMETHYLPHENIDATE HYDROCHLORIDE
  21. CLARITHROMYCIN. [Concomitant]
     Active Substance: CLARITHROMYCIN
  22. XYREM [Suspect]
     Active Substance: SODIUM OXYBATE
     Indication: NARCOLEPSY
     Dosage: 3 G, BID
     Route: 048
     Dates: start: 201008, end: 2010
  23. DUAL [Concomitant]
  24. VITAMIN D [Concomitant]
     Active Substance: CHOLECALCIFEROL
  25. CATAFLAM [Concomitant]
     Active Substance: DICLOFENAC POTASSIUM
  26. XYREM [Suspect]
     Active Substance: SODIUM OXYBATE
     Dosage: 4.5 G, BID
     Route: 048
     Dates: start: 201304
  27. HYDROCORTISONE. [Concomitant]
     Active Substance: HYDROCORTISONE
  28. LYSINE [Concomitant]
     Active Substance: LYSINE
  29. OMEPRAZOLE. [Concomitant]
     Active Substance: OMEPRAZOLE
  30. SUCRALFATE. [Concomitant]
     Active Substance: SUCRALFATE
  31. VALACYCLOVIR HCL [Concomitant]
     Active Substance: VALACYCLOVIR HYDROCHLORIDE
  32. ADDERALL [Concomitant]
     Active Substance: AMPHETAMINE ASPARTATE\AMPHETAMINE SULFATE\DEXTROAMPHETAMINE SACCHARATE\DEXTROAMPHETAMINE SULFATE

REACTIONS (1)
  - Dry eye [Not Recovered/Not Resolved]
